FAERS Safety Report 8345829-2 (Version None)
Quarter: 2012Q2

REPORT INFORMATION
  Report Type: 
  Country: None (occurrence: None)
  Receive Date: 20120509
  Receipt Date: 20120430
  Transmission Date: 20120825
  Serious: Yes (Hospitalization)
  Sender: FDA-Public Use
  Company Number: US-BIOGENIDEC-2012BI006654

PATIENT
  Age: 39 Year
  Sex: Male

DRUGS (3)
  1. TYSABRI [Suspect]
     Indication: MULTIPLE SCLEROSIS
     Route: 042
     Dates: start: 20091118
  2. BACTRIM [Concomitant]
  3. PENICILLIN [Concomitant]

REACTIONS (5)
  - CELLULITIS [None]
  - STEVENS-JOHNSON SYNDROME [None]
  - DEHYDRATION [None]
  - DRUG HYPERSENSITIVITY [None]
  - BLOOD SODIUM DECREASED [None]
